FAERS Safety Report 12358458 (Version 1)
Quarter: 2016Q2

REPORT INFORMATION
  Report Type: Spontaneous
  Country: US (occurrence: US)
  Receive Date: 20160512
  Receipt Date: 20160512
  Transmission Date: 20160815
  Serious: No
  Sender: FDA-Public Use
  Company Number: US-PFIZER INC-2016249831

PATIENT
  Age: 86 Year
  Sex: Female

DRUGS (1)
  1. ADVIL [Suspect]
     Active Substance: IBUPROFEN
     Indication: HIP FRACTURE
     Dosage: 200MG, CAPLETS

REACTIONS (3)
  - Gingival pain [Unknown]
  - Gingival erythema [Unknown]
  - Product use issue [Unknown]
